FAERS Safety Report 5977777-7 (Version None)
Quarter: 2008Q4

REPORT INFORMATION
  Report Type: 
  Country: None (occurrence: None)
  Receive Date: 20081202
  Receipt Date: 20081202
  Transmission Date: 20090506
  Serious: No
  Sender: FDA-Public Use
  Company Number: None

PATIENT
  Age: 33 Year
  Sex: Female
  Weight: 81.6475 kg

DRUGS (2)
  1. NUVARING [Suspect]
     Indication: DYSMENORRHOEA
     Dosage: 1 RING 3WEEKS VAG
     Route: 067
     Dates: start: 20081110, end: 20081126
  2. NUVARING [Suspect]
     Indication: METRORRHAGIA
     Dosage: 1 RING 3WEEKS VAG
     Route: 067
     Dates: start: 20081110, end: 20081126

REACTIONS (1)
  - VAGINAL DISCHARGE [None]
